FAERS Safety Report 11700092 (Version 1)
Quarter: 2015Q4

REPORT INFORMATION
  Report Type: Report from Study
  Country: TR (occurrence: TR)
  Receive Date: 20151105
  Receipt Date: 20151105
  Transmission Date: 20160304
  Serious: Yes (Hospitalization)
  Sender: FDA-Public Use
  Company Number: TR-ROCHE-1261299

PATIENT
  Age: 54 Year
  Sex: Female
  Weight: 82 kg

DRUGS (7)
  1. TELAPREVIR [Suspect]
     Active Substance: TELAPREVIR
     Indication: CHRONIC HEPATITIS C
     Route: 048
     Dates: start: 20130528, end: 20130625
  2. RIBAVIRIN. [Suspect]
     Active Substance: RIBAVIRIN
     Indication: CHRONIC HEPATITIS C
     Route: 048
     Dates: start: 20130528, end: 20130625
  3. ASPIRIN. [Concomitant]
     Active Substance: ASPIRIN
     Route: 048
  4. PEG-INTERFERON ALFA 2A [Suspect]
     Active Substance: PEGINTERFERON ALFA-2A
     Indication: CHRONIC HEPATITIS C
     Route: 058
     Dates: start: 20130528, end: 20130625
  5. DIAMICRON [Concomitant]
     Active Substance: GLICLAZIDE
     Indication: DIABETES MELLITUS
     Route: 048
  6. COVERSYL [Concomitant]
     Active Substance: PERINDOPRIL
     Indication: HYPERTENSION
     Route: 048
  7. GLIFIX [Concomitant]
     Indication: DIABETES MELLITUS
     Route: 048

REACTIONS (7)
  - Anaemia [Recovered/Resolved]
  - Alanine aminotransferase increased [Recovered/Resolved]
  - Leukopenia [Recovered/Resolved]
  - Chest pain [Recovered/Resolved]
  - Neutropenia [Recovered/Resolved]
  - Reflux gastritis [Recovered/Resolved]
  - Thrombocytopenia [Recovered/Resolved]

NARRATIVE: CASE EVENT DATE: 20130604
